FAERS Safety Report 16898015 (Version 2)
Quarter: 2019Q4

REPORT INFORMATION
  Report Type: Spontaneous
  Country: BE (occurrence: BE)
  Receive Date: 20191009
  Receipt Date: 20191024
  Transmission Date: 20200122
  Serious: Yes (Hospitalization, Other)
  Sender: FDA-Public Use
  Company Number: BE-PFIZER INC-2019432962

PATIENT
  Sex: Female

DRUGS (12)
  1. STILNOCT [Suspect]
     Active Substance: ZOLPIDEM TARTRATE
     Indication: INSOMNIA
     Dosage: UNK
  2. TEMESTA (LORAZEPAM) [Suspect]
     Active Substance: LORAZEPAM
     Indication: INSOMNIA
     Dosage: UNK
  3. MOGADON [Suspect]
     Active Substance: NITRAZEPAM
     Indication: INSOMNIA
     Dosage: UNK
  4. SEROXAT [Suspect]
     Active Substance: PAROXETINE HYDROCHLORIDE
     Indication: DEPRESSION
     Dosage: UNK
  5. DEANXIT [Concomitant]
     Active Substance: FLUPENTIXOL DIHYDROCHLORIDE\MELITRACEN HYDROCHLORIDE
     Indication: DEPRESSION
  6. ZOLPIDEM [Suspect]
     Active Substance: ZOLPIDEM TARTRATE
     Indication: INSOMNIA
     Dosage: UNK
  7. LORAMET [Suspect]
     Active Substance: LORMETAZEPAM
     Indication: INSOMNIA
     Dosage: UNK
  8. ROHYPNOL [Suspect]
     Active Substance: FLUNITRAZEPAM
     Indication: INSOMNIA
     Dosage: UNK
  9. FLUANXOL [FLUPENTIXOL DECANOATE] [Concomitant]
     Active Substance: FLUPENTIXOL DECANOATE
  10. ZYPREXA [Concomitant]
     Active Substance: OLANZAPINE
  11. PROLOPA [Concomitant]
     Active Substance: BENSERAZIDE\LEVODOPA
  12. TRANXENE [Suspect]
     Active Substance: CLORAZEPATE DIPOTASSIUM
     Indication: INSOMNIA
     Dosage: UNK

REACTIONS (8)
  - Aphasia [Unknown]
  - Depression [Recovered/Resolved]
  - Parkinson^s disease [Recovered/Resolved]
  - Anxiety [Recovered/Resolved]
  - Memory impairment [Unknown]
  - Presenile dementia [Recovered/Resolved]
  - Suicidal ideation [Recovered/Resolved]
  - Social avoidant behaviour [Recovered/Resolved]
